FAERS Safety Report 5673218-8 (Version None)
Quarter: 2008Q1

REPORT INFORMATION
  Report Type: 
  Country: None (occurrence: None)
  Receive Date: 20080319
  Receipt Date: 20070705
  Transmission Date: 20080703
  Serious: Yes (Other)
  Sender: FDA-Public Use
  Company Number: PHBS2007NO21721

PATIENT
  Age: 48 Year
  Sex: Female

DRUGS (6)
  1. TEGRETOL [Suspect]
     Indication: BULIMIA NERVOSA
     Dosage: 400 MG/DAY
  2. REBOXETINE [Suspect]
     Indication: BULIMIA NERVOSA
     Dosage: 8 MG/DAY
  3. OLANZAPINE [Concomitant]
  4. CLONAZEPAM [Concomitant]
  5. ALPRAZOLAM [Concomitant]
  6. BUSPIRONE HCL [Concomitant]

REACTIONS (2)
  - DRUG INTERACTION [None]
  - DRUG LEVEL DECREASED [None]
